FAERS Safety Report 8818082 (Version 3)
Quarter: 2013Q3

REPORT INFORMATION
  Report Type: Spontaneous
  Country: US (occurrence: US)
  Receive Date: 20121001
  Receipt Date: 20130930
  Transmission Date: 20140515
  Serious: Yes (Hospitalization)
  Sender: FDA-Public Use
  Company Number: US-BAYER-2012-100280

PATIENT
  Age: 29 Year
  Sex: Female

DRUGS (6)
  1. YASMIN [Suspect]
     Dosage: UNK
     Dates: start: 20061201, end: 200612
  2. ALTEPLASE [Concomitant]
  3. MORPHINE [Concomitant]
  4. ENOXAPARIN [Concomitant]
  5. OXYGEN [Concomitant]
  6. AZITHROMYCIN [Concomitant]

REACTIONS (13)
  - Pulmonary embolism [None]
  - Pain [None]
  - Injury [None]
  - General physical health deterioration [None]
  - Anxiety [None]
  - Emotional distress [None]
  - Anhedonia [None]
  - Pain [None]
  - Dyspnoea exertional [None]
  - Cough [None]
  - Respiratory disorder [None]
  - Rhinorrhoea [None]
  - Oropharyngeal pain [None]
